FAERS Safety Report 25988963 (Version 1)
Quarter: 2025Q4

REPORT INFORMATION
  Report Type: Report from Study
  Country: BR (occurrence: BR)
  Receive Date: 20251103
  Receipt Date: 20251103
  Transmission Date: 20260117
  Serious: No
  Sender: BIOGEN
  Company Number: BR-BIOGEN-2088633

PATIENT
  Age: 33 Year

DRUGS (1)
  1. TYSABRI [Suspect]
     Active Substance: NATALIZUMAB
     Indication: Multiple sclerosis

REACTIONS (2)
  - Rash papular [Unknown]
  - Blister [Unknown]

NARRATIVE: CASE EVENT DATE: 20250925
